FAERS Safety Report 18156751 (Version 1)
Quarter: 2020Q3

REPORT INFORMATION
  Report Type: Spontaneous
  Country: US (occurrence: US)
  Receive Date: 20200817
  Receipt Date: 20200817
  Transmission Date: 20201103
  Serious: No
  Sender: FDA-Public Use
  Company Number: None

PATIENT
  Age: 67 Year
  Sex: Female
  Weight: 60.75 kg

DRUGS (5)
  1. LOSARTAN. [Concomitant]
     Active Substance: LOSARTAN
  2. ONE DAILY WOMEN^S VITAMINS [Concomitant]
  3. TURMERIC FORCE [Concomitant]
  4. STIOLTO RESPIMAT [Suspect]
     Active Substance: OLODATEROL HYDROCHLORIDE\TIOTROPIUM BROMIDE MONOHYDRATE
     Indication: CHRONIC OBSTRUCTIVE PULMONARY DISEASE
     Dosage: ?          QUANTITY:2 PUFF(S);?
     Route: 055
     Dates: start: 20200624, end: 20200815
  5. CALCIUM W/VITAMIN D3 [Concomitant]
     Active Substance: CALCIUM\CHOLECALCIFEROL

REACTIONS (19)
  - Dry skin [None]
  - Peripheral swelling [None]
  - Hyperhidrosis [None]
  - Middle insomnia [None]
  - Erythema [None]
  - Vision blurred [None]
  - Urticaria [None]
  - Headache [None]
  - Hypoaesthesia [None]
  - Chills [None]
  - Pruritus [None]
  - Neck pain [None]
  - Bone pain [None]
  - Dyspnoea [None]
  - Depression [None]
  - Arthralgia [None]
  - Pain in extremity [None]
  - Dry mouth [None]
  - Pollakiuria [None]

NARRATIVE: CASE EVENT DATE: 20200814
